FAERS Safety Report 13062200 (Version 2)
Quarter: 2017Q1

REPORT INFORMATION
  Report Type: Spontaneous
  Country: JP (occurrence: JP)
  Receive Date: 20161226
  Receipt Date: 20170321
  Transmission Date: 20170428
  Serious: Yes (Hospitalization, Other)
  Sender: FDA-Public Use
  Company Number: JP-ELI_LILLY_AND_COMPANY-JP201612008512

PATIENT
  Age: 46 Year
  Sex: Female
  Weight: 57 kg

DRUGS (5)
  1. ERBITUX [Suspect]
     Active Substance: CETUXIMAB
     Indication: COLORECTAL CANCER METASTATIC
     Dosage: 400 MG/M2, WEEKLY (1/W)
     Route: 042
     Dates: start: 20160928
  2. CPT-11 [Concomitant]
     Active Substance: IRINOTECAN
     Indication: COLORECTAL CANCER METASTATIC
     Dosage: UNK UNK, UNKNOWN
     Route: 042
     Dates: start: 20160928
  3. FOLINATE CALCIUM [Concomitant]
     Active Substance: LEUCOVORIN CALCIUM
     Indication: COLORECTAL CANCER METASTATIC
     Dosage: UNK UNK, UNKNOWN
     Route: 042
     Dates: start: 20160928
  4. 5-FU                               /00098801/ [Concomitant]
     Active Substance: FLUOROURACIL
     Indication: COLORECTAL CANCER METASTATIC
     Dosage: UNK UNK, UNKNOWN
     Route: 042
     Dates: start: 20160928
  5. ERBITUX [Suspect]
     Active Substance: CETUXIMAB
     Dosage: 250 MG/M2, WEEKLY (1/W)
     Route: 042

REACTIONS (6)
  - Hypomagnesaemia [Recovered/Resolved]
  - Hypocalcaemia [Unknown]
  - Gastrointestinal pain [Unknown]
  - Hypokalaemia [Unknown]
  - Inflammation [Unknown]
  - Biliary colic [Unknown]

NARRATIVE: CASE EVENT DATE: 20161003
